FAERS Safety Report 5811622-5 (Version None)
Quarter: 2008Q3

REPORT INFORMATION
  Report Type: 
  Country: None (occurrence: None)
  Receive Date: 20080711
  Receipt Date: 20080711
  Transmission Date: 20090109
  Serious: Yes (Other)
  Sender: FDA-Public Use
  Company Number: None

PATIENT
  Age: 51 Year
  Sex: Female
  Weight: 49.8957 kg

DRUGS (3)
  1. PEPCID [Suspect]
     Indication: GASTROOESOPHAGEAL REFLUX DISEASE
     Dosage: 10 1 A DAY ORALLY
     Route: 048
     Dates: start: 20080508
  2. ZANTAC [Suspect]
     Dosage: 10  1 A DAY ORALLY
     Route: 048
     Dates: start: 20071005
  3. REGLAN [Concomitant]

REACTIONS (5)
  - CARDIAC MURMUR [None]
  - CHEST PAIN [None]
  - DIZZINESS [None]
  - HYPOAESTHESIA [None]
  - PALPITATIONS [None]
